FAERS Safety Report 6742058-0 (Version None)
Quarter: 2010Q2

REPORT INFORMATION
  Report Type: 
  Country: None (occurrence: None)
  Receive Date: 20100526
  Receipt Date: 20100526
  Transmission Date: 20101027
  Serious: Yes (Hospitalization)
  Sender: FDA-Public Use
  Company Number: None

PATIENT
  Age: 73 Month
  Sex: Male
  Weight: 22.7 kg

DRUGS (1)
  1. CHILDREN'S MOTRIN [Suspect]
     Indication: VIRAL INFECTION
     Dosage: 2 TSP 2-3 TIMES DAILY MOUTH ISOLATED TIMES PREVIOUSLY
     Route: 048
     Dates: start: 20100321, end: 20100321

REACTIONS (14)
  - ABDOMINAL DISTENSION [None]
  - ABDOMINAL PAIN UPPER [None]
  - ASTHENIA [None]
  - DEHYDRATION [None]
  - DIARRHOEA [None]
  - FATIGUE [None]
  - FLATULENCE [None]
  - GASTROINTESTINAL INFLAMMATION [None]
  - HYPERSOMNIA [None]
  - PALLOR [None]
  - PRODUCT QUALITY ISSUE [None]
  - PYREXIA [None]
  - URTICARIA [None]
  - WEIGHT DECREASED [None]
